FAERS Safety Report 5911851-6 (Version None)
Quarter: 2008Q4

REPORT INFORMATION
  Report Type: 
  Country: None (occurrence: None)
  Receive Date: 20081008
  Receipt Date: 20081003
  Transmission Date: 20090506
  Serious: Yes (Other)
  Sender: FDA-Public Use
  Company Number: US-BAYER-200829317NA

PATIENT
  Sex: Female

DRUGS (2)
  1. NEXAVAR [Suspect]
     Indication: HEPATIC NEOPLASM
     Dosage: UNIT DOSE: 200 MG
     Route: 048
     Dates: end: 20080722
  2. NEXAVAR [Suspect]
     Dosage: TOTAL DAILY DOSE: 400 MG  UNIT DOSE: 200 MG
     Route: 048

REACTIONS (6)
  - CONFUSIONAL STATE [None]
  - FATIGUE [None]
  - INCOHERENT [None]
  - SPEECH DISORDER [None]
  - UNEVALUABLE EVENT [None]
  - VISUAL ACUITY REDUCED [None]
